FAERS Safety Report 17739995 (Version 1)
Quarter: 2020Q2

REPORT INFORMATION
  Report Type: Spontaneous
  Country: US (occurrence: US)
  Receive Date: 20200504
  Receipt Date: 20200504
  Transmission Date: 20200714
  Serious: Yes (Hospitalization, Other)
  Sender: FDA-Public Use
  Company Number: US-SA-2020SA107876

PATIENT
  Age: 65 Year
  Sex: Male

DRUGS (9)
  1. ANTI-THYMOCYTE GLOBULIN (RABBIT) NOS [Suspect]
     Active Substance: LAPINE T-LYMPHOCYTE IMMUNE GLOBULIN
     Indication: IMMUNOSUPPRESSION
     Dosage: 2 MG/KG
  2. MYCOPHENOLATE MOFETIL. [Suspect]
     Active Substance: MYCOPHENOLATE MOFETIL
     Dosage: 1000 MG, BID
  3. METHYLPREDNISOLONE. [Suspect]
     Active Substance: METHYLPREDNISOLONE
     Indication: IMMUNOSUPPRESSION
     Dosage: 250 MG
  4. AMLODIPINE [Suspect]
     Active Substance: AMLODIPINE BESYLATE
     Indication: BLOOD PRESSURE SYSTOLIC INCREASED
  5. RED BLOOD CELLS [Concomitant]
     Active Substance: HUMAN RED BLOOD CELL
     Indication: ANAEMIA
     Dosage: 2 U
  6. TACROLIMUS. [Suspect]
     Active Substance: TACROLIMUS
     Dosage: BEGINNING POD 3 TO A GOAL TROUGH OF 8-12 NG/ML
  7. METOPROLOL SALT NOT SPECIFIED [Suspect]
     Active Substance: METOPROLOL
     Indication: BLOOD PRESSURE SYSTOLIC INCREASED
  8. ASPIRIN [ACETYLSALICYLIC ACID] [Concomitant]
     Active Substance: ASPIRIN
     Indication: STENT PATENCY MAINTENANCE
     Dosage: 81 MG, QD
  9. PREDNISONE. [Suspect]
     Active Substance: PREDNISONE
     Dosage: 5 MG, QD

REACTIONS (15)
  - Renal tubular atrophy [Recovered/Resolved]
  - Lethargy [Recovered/Resolved]
  - Drug ineffective [Unknown]
  - Glomerulosclerosis [Recovered/Resolved]
  - Renal haemorrhage [Recovered/Resolved]
  - Renal cyst ruptured [Recovered/Resolved]
  - Urine flow decreased [Recovered/Resolved]
  - Flank pain [Recovered/Resolved]
  - Renal haematoma [Recovered/Resolved]
  - Ureteric anastomosis complication [Recovered/Resolved]
  - Kidney rupture [Recovered/Resolved]
  - Mental status changes [Recovered/Resolved]
  - Hypertension [Unknown]
  - Abdominal distension [Recovered/Resolved]
  - Postoperative hypertension [Unknown]
